FAERS Safety Report 4495151-X (Version None)
Quarter: 2004Q4

REPORT INFORMATION
  Report Type: 
  Country: None (occurrence: None)
  Receive Date: 20041105
  Receipt Date: 20041105
  Transmission Date: 20050328
  Serious: Yes (Life-Threatening)
  Sender: FDA-Public Use
  Company Number: None

PATIENT
  Sex: Male
  Weight: 61.2356 kg

DRUGS (3)
  1. ERBITUX 100 MG IMCLONE /BMS [Suspect]
     Indication: COLON CANCER
     Dosage: 100 MG IV OTO
     Route: 042
     Dates: start: 20041006
  2. TYLENOL [Concomitant]
  3. BENEDRYL [Concomitant]

REACTIONS (10)
  - BLOOD PRESSURE DECREASED [None]
  - DYSPNOEA [None]
  - EYE REDNESS [None]
  - HYPERHIDROSIS [None]
  - INFUSION RELATED REACTION [None]
  - OBSTRUCTIVE AIRWAYS DISORDER [None]
  - OXYGEN SATURATION DECREASED [None]
  - RASH [None]
  - SOMNOLENCE [None]
  - SWELLING FACE [None]
